FAERS Safety Report 10257926 (Version 1)
Quarter: 2014Q2

REPORT INFORMATION
  Report Type: Spontaneous
  Country: US (occurrence: US)
  Receive Date: 20140625
  Receipt Date: 20140625
  Transmission Date: 20141212
  Serious: No
  Sender: FDA-Public Use
  Company Number: US-PFIZER INC-2014170113

PATIENT
  Age: 91 Year
  Sex: Male

DRUGS (2)
  1. LIPITOR [Suspect]
     Indication: BLOOD CHOLESTEROL INCREASED
     Dosage: 10 MG, DAILY
  2. CLOTRIMAZOLE [Concomitant]
     Dosage: UNK

REACTIONS (6)
  - Myalgia [Unknown]
  - Gait disturbance [Unknown]
  - Arthralgia [Unknown]
  - Pain in extremity [Unknown]
  - Back disorder [Unknown]
  - Frequent bowel movements [Unknown]
